FAERS Safety Report 8941515 (Version 1)
Quarter: 2012Q4

REPORT INFORMATION
  Report Type: 
  Country: JP (occurrence: JP)
  Receive Date: 20121203
  Receipt Date: 20121203
  Transmission Date: 20130627
  Serious: Yes (Hospitalization)
  Sender: FDA-Public Use
  Company Number: JP-MYLANLABS-2012S1024403

PATIENT
  Sex: Male

DRUGS (8)
  1. PREDNISOLONE [Suspect]
     Indication: DIFFUSE LARGE B-CELL LYMPHOMA
     Dosage: 6 cycles as part of R-THP-COP
     Route: 065
     Dates: start: 2003, end: 2003
  2. METHOTREXATE [Suspect]
     Indication: DIFFUSE LARGE B-CELL LYMPHOMA
     Dosage: high-dose
     Route: 065
     Dates: start: 200309
  3. RITUXIMAB [Suspect]
     Indication: DIFFUSE LARGE B-CELL LYMPHOMA
     Dosage: 6 cycles as part of R-THP-COP
     Route: 065
     Dates: start: 2003, end: 2003
  4. RITUXIMAB [Suspect]
     Indication: DIFFUSE LARGE B-CELL LYMPHOMA
     Dosage: 375 mg/m2 on day 1
     Route: 042
     Dates: end: 200404
  5. PIRARUBICIN [Suspect]
     Indication: DIFFUSE LARGE B-CELL LYMPHOMA
     Dosage: 6 cycles as part of R-THP-COP
     Route: 065
     Dates: start: 2003, end: 2003
  6. CYCLOPHOSPHAMIDE [Suspect]
     Indication: DIFFUSE LARGE B-CELL LYMPHOMA
     Dosage: 6 cycles as part of R-THP-COP
     Route: 065
     Dates: start: 2003, end: 2003
  7. VINCRISTINE [Suspect]
     Indication: DIFFUSE LARGE B-CELL LYMPHOMA
     Dosage: 6 cycles as part of R-THP-COP
     Route: 065
     Dates: start: 2003, end: 2003
  8. CLADRIBINE [Suspect]
     Indication: DIFFUSE LARGE B-CELL LYMPHOMA
     Dosage: days 2-6
     Route: 042
     Dates: end: 200404

REACTIONS (1)
  - Myelodysplastic syndrome [Unknown]
